FAERS Safety Report 6199530-4 (Version None)
Quarter: 2009Q2

REPORT INFORMATION
  Report Type: 
  Country: None (occurrence: None)
  Receive Date: 20090522
  Receipt Date: 20090515
  Transmission Date: 20091009
  Serious: Yes (Death, Life-Threatening, Hospitalization, Disabling, Other)
  Sender: FDA-Public Use
  Company Number: A0773236A

PATIENT
  Age: 17 Year
  Sex: Male

DRUGS (4)
  1. LAMICTAL [Suspect]
     Indication: OBSESSIVE-COMPULSIVE DISORDER
     Route: 048
  2. AMOXICILLIN [Suspect]
     Route: 065
  3. SEPTRA [Suspect]
  4. UNKNOWN [Concomitant]

REACTIONS (4)
  - DEATH [None]
  - MALAISE [None]
  - PHARYNGITIS STREPTOCOCCAL [None]
  - RASH GENERALISED [None]
